FAERS Safety Report 12429973 (Version 1)
Quarter: 2016Q2

REPORT INFORMATION
  Report Type: Spontaneous
  Country: US (occurrence: US)
  Receive Date: 20160602
  Receipt Date: 20160602
  Transmission Date: 20160815
  Serious: No
  Sender: FDA-Public Use
  Company Number: US-KADMON PHARMACEUTICALS, LLC-KAD201601-000023

PATIENT
  Age: 57 Year
  Sex: Female
  Weight: 81.64 kg

DRUGS (2)
  1. RIBAVIRIN. [Suspect]
     Active Substance: RIBAVIRIN
     Indication: HEPATITIS C
     Route: 048
  2. SOVALDI [Suspect]
     Active Substance: SOFOSBUVIR
     Indication: HEPATITIS C
     Route: 048

REACTIONS (6)
  - Fatigue [Unknown]
  - Memory impairment [Unknown]
  - Arthralgia [Unknown]
  - Mental disorder [Unknown]
  - Mental impairment [Unknown]
  - Myalgia [Unknown]
